FAERS Safety Report 4415391-5 (Version None)
Quarter: 2004Q3

REPORT INFORMATION
  Report Type: 
  Country: None (occurrence: None)
  Receive Date: 20040804
  Receipt Date: 20040526
  Transmission Date: 20050211
  Serious: Yes (Other)
  Sender: FDA-Public Use
  Company Number: PHNU2004DE01952

PATIENT
  Sex: Male
  Weight: 142 kg

DRUGS (3)
  1. SANDIMMUNE [Suspect]
     Indication: HEART TRANSPLANT
     Dosage: 350MG/DAY
     Route: 048
     Dates: start: 19940101
  2. XANEF [Concomitant]
     Indication: HEART TRANSPLANT
     Dosage: 40MG/DAY
     Route: 048
     Dates: start: 19980101
  3. NORVASC [Concomitant]
     Indication: HEART TRANSPLANT
     Dosage: 10MG/DAY
     Dates: start: 20000101

REACTIONS (2)
  - HEADACHE [None]
  - TRANSPLANT FAILURE [None]
